FAERS Safety Report 11231142 (Version 1)
Quarter: 2015Q2

REPORT INFORMATION
  Report Type: Spontaneous
  Country: US (occurrence: None)
  Receive Date: 20150629
  Receipt Date: 20150629
  Transmission Date: 20150821
  Serious: Yes (Disabling)
  Sender: FDA-Public Use
  Company Number: None

PATIENT
  Age: 69 Year
  Sex: Female
  Weight: 72.58 kg

DRUGS (13)
  1. TAMOXIFEN [Suspect]
     Active Substance: TAMOXIFEN
     Indication: ASTHENIA
     Route: 048
     Dates: start: 20141110, end: 20150626
  2. GLUCOSAMINE [Concomitant]
     Active Substance: GLUCOSAMINE
  3. TAMOXIFEN [Suspect]
     Active Substance: TAMOXIFEN
     Indication: FATIGUE
     Route: 048
     Dates: start: 20141110, end: 20150626
  4. TAMOXIFEN [Suspect]
     Active Substance: TAMOXIFEN
     Indication: BREAST CANCER
     Route: 048
     Dates: start: 20141027, end: 20141109
  5. TAMOXIFEN [Suspect]
     Active Substance: TAMOXIFEN
     Indication: BREAST CANCER
     Route: 048
     Dates: start: 20141110, end: 20150626
  6. BABY ASPIRIN [Concomitant]
     Active Substance: ASPIRIN
  7. TAMOXIFEN [Suspect]
     Active Substance: TAMOXIFEN
     Indication: FATIGUE
     Route: 048
     Dates: start: 20141027, end: 20141109
  8. TAMOXIFEN [Suspect]
     Active Substance: TAMOXIFEN
     Indication: ASTHENIA
     Route: 048
     Dates: start: 20141027, end: 20141109
  9. LOSARTAN [Concomitant]
     Active Substance: LOSARTAN
  10. LOVAZA [Concomitant]
     Active Substance: OMEGA-3-ACID ETHYL ESTERS
  11. MULTIVITAMIN [Concomitant]
     Active Substance: VITAMINS
  12. TAMOXIFEN [Suspect]
     Active Substance: TAMOXIFEN
     Indication: ARTHRALGIA
     Route: 048
     Dates: start: 20141110, end: 20150626
  13. TAMOXIFEN [Suspect]
     Active Substance: TAMOXIFEN
     Indication: MUSCLE SPASMS
     Route: 048
     Dates: start: 20141027, end: 20141109

REACTIONS (4)
  - Muscular weakness [None]
  - Muscle spasms [None]
  - Product quality issue [None]
  - Arthralgia [None]

NARRATIVE: CASE EVENT DATE: 20150626
